FAERS Safety Report 20119284 (Version 1)
Quarter: 2021Q4

REPORT INFORMATION
  Report Type: Report from Study
  Country: EG (occurrence: EG)
  Receive Date: 20211126
  Receipt Date: 20211126
  Transmission Date: 20220303
  Serious: Yes (Hospitalization, Other)
  Sender: FDA-Public Use
  Company Number: EG-002147023-NVSC2021EG267273

PATIENT

DRUGS (4)
  1. RUXOLITINIB [Suspect]
     Active Substance: RUXOLITINIB
     Indication: Myelofibrosis
     Dosage: 1 DF, QD
     Route: 048
  2. RUXOLITINIB [Suspect]
     Active Substance: RUXOLITINIB
     Dosage: 2 DF, BID FOR 1 OR 2 WEEKS
     Route: 065
     Dates: start: 201911, end: 201912
  3. RUXOLITINIB [Suspect]
     Active Substance: RUXOLITINIB
     Dosage: 1 DF, BID
     Route: 065
  4. ASPIRIN [Concomitant]
     Active Substance: ASPIRIN
     Indication: Fluid imbalance
     Dosage: 2 DF, QD
     Route: 065

REACTIONS (5)
  - Hypersensitivity [Not Recovered/Not Resolved]
  - Gout [Recovering/Resolving]
  - Pain in extremity [Recovered/Resolved]
  - Peripheral swelling [Recovered/Resolved]
  - Splenomegaly [Recovered/Resolved]

NARRATIVE: CASE EVENT DATE: 20190601
